FAERS Safety Report 25662507 (Version 1)
Quarter: 2025Q3

REPORT INFORMATION
  Report Type: Spontaneous
  Country: US (occurrence: US)
  Receive Date: 20250810
  Receipt Date: 20250810
  Transmission Date: 20251021
  Serious: Yes (Disabling)
  Sender: BOEHRINGER INGELHEIM
  Company Number: US-Komodo Health-a23aa000009Lc57AAC

PATIENT
  Sex: Female

DRUGS (1)
  1. SPIRIVA RESPIMAT [Suspect]
     Active Substance: TIOTROPIUM BROMIDE
     Indication: Product used for unknown indication
     Dosage: 2 PUFFS/INHALATION DAILY
     Dates: start: 202502

REACTIONS (1)
  - Immobile [Not Recovered/Not Resolved]
